APPROVED DRUG PRODUCT: HYDROMORPHONE HYDROCHLORIDE
Active Ingredient: HYDROMORPHONE HYDROCHLORIDE
Strength: 10MG/ML
Dosage Form/Route: INJECTABLE;INJECTION
Application: A074598 | Product #001
Applicant: HOSPIRA INC
Approved: Jun 19, 1997 | RLD: No | RS: No | Type: DISCN